FAERS Safety Report 10495195 (Version 1)
Quarter: 2014Q3

REPORT INFORMATION
  Report Type: Spontaneous
  Country: US (occurrence: None)
  Receive Date: 20140815
  Receipt Date: 20140815
  Transmission Date: 20150326
  Serious: Yes (Other)
  Sender: FDA-Public Use
  Company Number: ADR-2014-00394

PATIENT
  Age: 57 Year
  Sex: Female

DRUGS (2)
  1. BACLOFEN. [Suspect]
     Active Substance: BACLOFEN
     Indication: MUSCLE SPASTICITY
     Dates: start: 2003
  2. CLONIDINE. [Suspect]
     Active Substance: CLONIDINE

REACTIONS (4)
  - Hypertonia [None]
  - Muscle spasticity [None]
  - Clonus [None]
  - Muscular weakness [None]

NARRATIVE: CASE EVENT DATE: 20140124
